FAERS Safety Report 23627304 (Version 2)
Quarter: 2024Q1

REPORT INFORMATION
  Report Type: Spontaneous
  Country: NZ (occurrence: NZ)
  Receive Date: 20240313
  Receipt Date: 20240315
  Transmission Date: 20240410
  Serious: Yes (Other)
  Sender: FDA-Public Use
  Company Number: NZ-PFIZER INC-PV202400032586

PATIENT
  Age: 86 Year
  Sex: Male

DRUGS (5)
  1. METHOTREXATE SODIUM [Interacting]
     Active Substance: METHOTREXATE SODIUM
     Dosage: UNK
  2. ASPIRIN [Interacting]
     Active Substance: ASPIRIN
     Dosage: UNK
  3. VALPROATE SODIUM [Interacting]
     Active Substance: VALPROATE SODIUM
     Dosage: UNK
  4. AZILECT [Interacting]
     Active Substance: RASAGILINE MESYLATE
     Dosage: UNK
  5. TAMSULOSIN [Concomitant]
     Active Substance: TAMSULOSIN
     Dosage: UNK

REACTIONS (4)
  - Drug interaction [Unknown]
  - Hallucination [Unknown]
  - Restlessness [Unknown]
  - Somnolence [Unknown]
